FAERS Safety Report 11176944 (Version 1)
Quarter: 2015Q2

REPORT INFORMATION
  Report Type: Spontaneous
  Country: ES (occurrence: None)
  Receive Date: 20150608
  Receipt Date: 20150608
  Transmission Date: 20150821
  Serious: Yes (Other)
  Sender: FDA-Public Use
  Company Number: BD-2015-0425

PATIENT
  Age: 77 Year
  Sex: Female

DRUGS (5)
  1. DAPTOMYCIN. [Concomitant]
     Active Substance: DAPTOMYCIN
  2. METOCLOPRAMIDE (METOCLOPRAMIDE) [Suspect]
     Active Substance: METOCLOPRAMIDE
     Indication: VOMITING
     Route: 048
  3. LINEZOLID (LINEZOLID) [Suspect]
     Active Substance: LINEZOLID
     Indication: ENDOCARDITIS BACTERIAL
     Dosage: Q12H
     Route: 042
  4. MEROPENEM. [Concomitant]
     Active Substance: MEROPENEM
  5. LORAZEPAM. [Concomitant]
     Active Substance: LORAZEPAM

REACTIONS (1)
  - Serotonin syndrome [None]
